FAERS Safety Report 6460598-9 (Version None)
Quarter: 2009Q4

REPORT INFORMATION
  Report Type: 
  Country: None (occurrence: None)
  Receive Date: 20091124
  Receipt Date: 20091020
  Transmission Date: 20100525
  Serious: Yes (Other)
  Sender: FDA-Public Use
  Company Number: E-09-143

PATIENT
  Age: 67 Year
  Sex: Male

DRUGS (3)
  1. PREDNISONE [Suspect]
     Indication: PROSTATE CANCER METASTATIC
     Dosage: ORAL
     Route: 048
     Dates: start: 20090205
  2. IMC1121B (ANTI-VEGFR2 MAB) [Suspect]
  3. ZOMETA [Concomitant]

REACTIONS (1)
  - OSTEONECROSIS [None]
